FAERS Safety Report 8899538 (Version 2)
Quarter: 2012Q4

REPORT INFORMATION
  Report Type: 
  Country: AT (occurrence: AT)
  Receive Date: 20121109
  Receipt Date: 20121130
  Transmission Date: 20130627
  Serious: Yes (Disabling, Other)
  Sender: FDA-Public Use
  Company Number: AT-PFIZER INC-2012275643

PATIENT
  Age: 45 Year
  Sex: Female
  Weight: 63 kg

DRUGS (1)
  1. SAYANA [Suspect]
     Indication: CONTRACEPTION
     Dosage: UNK
     Dates: start: 2009

REACTIONS (4)
  - Normal tension glaucoma [Not Recovered/Not Resolved]
  - Optic atrophy [Not Recovered/Not Resolved]
  - Optic disc drusen [Not Recovered/Not Resolved]
  - Visual field defect [Not Recovered/Not Resolved]
